FAERS Safety Report 13361670 (Version 1)
Quarter: 2017Q1

REPORT INFORMATION
  Report Type: Spontaneous
  Country: DK (occurrence: DK)
  Receive Date: 20170323
  Receipt Date: 20170323
  Transmission Date: 20170429
  Serious: Yes (Life-Threatening)
  Sender: FDA-Public Use
  Company Number: DK-AMGEN-DNKSP2017043931

PATIENT
  Age: 34 Year
  Sex: Male
  Weight: 56 kg

DRUGS (4)
  1. ENBREL [Suspect]
     Active Substance: ETANERCEPT
     Dosage: 50 MG, WEEKLY
     Route: 058
     Dates: start: 20160408, end: 20160429
  2. HUMIRA [Suspect]
     Active Substance: ADALIMUMAB
     Indication: PSORIASIS
     Dosage: 40 MG, EVERY 2 WEEKS
     Route: 058
     Dates: start: 20140101
  3. ENBREL [Suspect]
     Active Substance: ETANERCEPT
     Indication: PSORIASIS
     Dosage: 50 MG, 2X/WEEK
     Route: 058
     Dates: start: 20150914, end: 20151109
  4. STELARA [Suspect]
     Active Substance: USTEKINUMAB
     Indication: PSORIASIS
     Dosage: 45 MG. EVERY 12 WEEKS.
     Route: 058
     Dates: start: 20150518

REACTIONS (2)
  - Myelitis transverse [Recovering/Resolving]
  - Condition aggravated [Recovering/Resolving]

NARRATIVE: CASE EVENT DATE: 201604
